FAERS Safety Report 6911958-0 (Version None)
Quarter: 2010Q3

REPORT INFORMATION
  Report Type: 
  Country: None (occurrence: None)
  Receive Date: 20100806
  Receipt Date: 20080213
  Transmission Date: 20110219
  Serious: No
  Sender: FDA-Public Use
  Company Number: US-PFIZER INC-2005072964

PATIENT
  Sex: Male
  Weight: 114.31 kg

DRUGS (5)
  1. DETROL LA [Suspect]
     Indication: POLLAKIURIA
     Route: 065
     Dates: start: 20040601
  2. LOTREL [Suspect]
     Indication: HYPERTENSION
     Route: 065
  3. TERAZOSIN HCL [Suspect]
     Indication: POLLAKIURIA
     Route: 065
     Dates: start: 20050101, end: 20050101
  4. TAMSULOSIN HCL [Suspect]
     Indication: POLLAKIURIA
     Route: 065
     Dates: start: 20050401
  5. LISINOPRIL [Concomitant]
     Route: 065

REACTIONS (6)
  - DRUG INEFFECTIVE [None]
  - DRY MOUTH [None]
  - JOINT SWELLING [None]
  - NASAL DRYNESS [None]
  - NOCTURIA [None]
  - WEIGHT INCREASED [None]
